FAERS Safety Report 21423750 (Version 1)
Quarter: 2022Q4

REPORT INFORMATION
  Report Type: Spontaneous
  Country: TR (occurrence: TR)
  Receive Date: 20221007
  Receipt Date: 20221007
  Transmission Date: 20230113
  Serious: Yes (Other)
  Sender: FDA-Public Use
  Company Number: TR-NOVARTISPH-NVSC2022TR223974

PATIENT

DRUGS (4)
  1. EVEROLIMUS [Interacting]
     Active Substance: EVEROLIMUS
     Indication: Lung transplant
     Dosage: (3-4 NG/ML)
     Route: 065
  2. EVEROLIMUS [Interacting]
     Active Substance: EVEROLIMUS
     Indication: Immunosuppressant drug therapy
     Dosage: 5 TO 8 (NG/ML)
     Route: 065
  3. TACROLIMUS [Interacting]
     Active Substance: TACROLIMUS
     Indication: Lung transplant
     Dosage: (3-5 NG/ML)
     Route: 065
  4. TACROLIMUS [Interacting]
     Active Substance: TACROLIMUS
     Indication: Immunosuppressant drug therapy

REACTIONS (6)
  - Cytopenia [Recovering/Resolving]
  - Atypical mycobacterial infection [Recovered/Resolved]
  - Impaired healing [Recovered/Resolved]
  - Decubitus ulcer [Recovered/Resolved]
  - Drug interaction [Unknown]
  - Product use in unapproved indication [Unknown]
